FAERS Safety Report 8297216-3 (Version None)
Quarter: 2012Q2

REPORT INFORMATION
  Report Type: 
  Country: None (occurrence: None)
  Receive Date: 20120419
  Receipt Date: 20120412
  Transmission Date: 20120825
  Serious: Yes (Other)
  Sender: FDA-Public Use
  Company Number: US-BAYER-2012-003797

PATIENT
  Age: 33 Year
  Sex: Female
  Weight: 62.812 kg

DRUGS (10)
  1. ALLERGY PRESCRIPTION [Concomitant]
     Indication: HYPERSENSITIVITY
     Dosage: UNK UNK, QD
  2. DROSPIRENONE AND ETHINYL ESTRADIOL [Suspect]
     Indication: PREMENSTRUAL SYNDROME
     Dosage: UNK
     Dates: start: 20090401, end: 20100603
  3. DROSPIRENONE AND ETHINYL ESTRADIOL [Suspect]
     Indication: MENSTRUATION IRREGULAR
  4. YAZ [Suspect]
     Indication: PREMENSTRUAL SYNDROME
     Dosage: UNK
     Dates: start: 20090101, end: 20090401
  5. FEXOFENADINE [Concomitant]
     Indication: SEASONAL ALLERGY
  6. ACIDOLPH PRU [Concomitant]
     Indication: LAXATIVE SUPPORTIVE CARE
     Dosage: 1-2 TIMES DAILY
  7. DICYCLOMINE [Concomitant]
     Indication: IRRITABLE BOWEL SYNDROME
  8. CRESTOR [Concomitant]
  9. YAZ [Suspect]
     Indication: MENSTRUATION IRREGULAR
  10. CELEXA [Concomitant]
     Indication: IRRITABLE BOWEL SYNDROME

REACTIONS (12)
  - SPEECH DISORDER [None]
  - MOOD ALTERED [None]
  - INJURY [None]
  - DYSURIA [None]
  - LACUNAR INFARCTION [None]
  - EMOTIONAL DISTRESS [None]
  - URINARY RETENTION [None]
  - MOOD SWINGS [None]
  - ANHEDONIA [None]
  - DYSPHAGIA [None]
  - PAIN [None]
  - WEIGHT INCREASED [None]
